FAERS Safety Report 16475812 (Version 2)
Quarter: 2019Q4

REPORT INFORMATION
  Report Type: Spontaneous
  Country: US (occurrence: US)
  Receive Date: 20190625
  Receipt Date: 20191017
  Transmission Date: 20200122
  Serious: No
  Sender: FDA-Public Use
  Company Number: US-TEVA-2019-US-1058659

PATIENT
  Sex: Female

DRUGS (1)
  1. ACTAVIS DULOXETINE DR [Suspect]
     Active Substance: DULOXETINE HYDROCHLORIDE
     Indication: DEPRESSION
     Route: 065

REACTIONS (3)
  - Feeling jittery [Unknown]
  - Dyspnoea [Unknown]
  - Product substitution issue [Unknown]
